FAERS Safety Report 8996313 (Version 2)
Quarter: 2013Q1

REPORT INFORMATION
  Report Type: Spontaneous
  Country: JP (occurrence: JP)
  Receive Date: 20130103
  Receipt Date: 20130328
  Transmission Date: 20140127
  Serious: Yes (Life-Threatening, Hospitalization)
  Sender: FDA-Public Use
  Company Number: JP-AMGEN-JPNSP2012083862

PATIENT
  Age: 67 Year
  Sex: Male
  Weight: 59 kg

DRUGS (7)
  1. VECTIBIX [Suspect]
     Indication: COLON CANCER
     Dosage: 344 MG, Q2WK
     Route: 041
     Dates: start: 20120904, end: 20121212
  2. VECTIBIX [Suspect]
     Dosage: 344 MG, Q2WK
     Route: 041
     Dates: start: 20130213
  3. CAMPTO [Concomitant]
     Indication: COLON CANCER
     Dosage: 252 MG, Q2WK
     Route: 041
     Dates: start: 20120904, end: 20121212
  4. CAMPTO [Concomitant]
     Dosage: UNK UNK, Q2WK
     Route: 041
     Dates: start: 20130213
  5. PROEMEND [Concomitant]
     Dosage: 150 MG, Q2WK
     Route: 041
     Dates: start: 20120904, end: 20121212
  6. GRANISETRON [Concomitant]
     Dosage: 3 MG, Q2WK
     Route: 041
     Dates: start: 20120904, end: 20121212
  7. DEXART [Concomitant]
     Dosage: 6.6 MG, Q2WK
     Route: 041
     Dates: start: 20120904, end: 20121212

REACTIONS (1)
  - Cardiac failure [Recovering/Resolving]
